FAERS Safety Report 17936409 (Version 5)
Quarter: 2021Q4

REPORT INFORMATION
  Report Type: Spontaneous
  Country: US (occurrence: US)
  Receive Date: 20200624
  Receipt Date: 20211228
  Transmission Date: 20220303
  Serious: Yes (Other)
  Sender: FDA-Public Use
  Company Number: US-GILEAD-2020-0475091

PATIENT
  Age: 53 Year
  Sex: Female
  Weight: 78.458 kg

DRUGS (54)
  1. TRUVADA [Suspect]
     Active Substance: EMTRICITABINE\TENOFOVIR DISOPROXIL FUMARATE
     Indication: HIV infection
     Dosage: UNK
     Route: 048
     Dates: start: 2017, end: 2017
  2. TRUVADA [Suspect]
     Active Substance: EMTRICITABINE\TENOFOVIR DISOPROXIL FUMARATE
     Dosage: UNK
     Route: 048
     Dates: start: 2013, end: 2013
  3. TRUVADA [Suspect]
     Active Substance: EMTRICITABINE\TENOFOVIR DISOPROXIL FUMARATE
     Dosage: UNK
     Route: 048
     Dates: start: 200904, end: 201001
  4. TRUVADA [Suspect]
     Active Substance: EMTRICITABINE\TENOFOVIR DISOPROXIL FUMARATE
     Dosage: UNK
     Route: 048
     Dates: start: 20100122, end: 20110121
  5. TRUVADA [Suspect]
     Active Substance: EMTRICITABINE\TENOFOVIR DISOPROXIL FUMARATE
     Dosage: UNK
     Route: 048
     Dates: start: 200902, end: 200904
  6. TRUVADA [Suspect]
     Active Substance: EMTRICITABINE\TENOFOVIR DISOPROXIL FUMARATE
     Dosage: UNK
     Route: 048
     Dates: start: 20110128, end: 20140807
  7. ATRIPLA [Suspect]
     Active Substance: EFAVIRENZ\EMTRICITABINE\TENOFOVIR DISOPROXIL FUMARATE
     Indication: HIV infection
     Dosage: UNK
     Route: 048
     Dates: start: 2009, end: 2017
  8. ATRIPLA [Suspect]
     Active Substance: EFAVIRENZ\EMTRICITABINE\TENOFOVIR DISOPROXIL FUMARATE
     Dosage: UNK
     Route: 048
     Dates: start: 200804, end: 201502
  9. ATRIPLA [Suspect]
     Active Substance: EFAVIRENZ\EMTRICITABINE\TENOFOVIR DISOPROXIL FUMARATE
     Dosage: UNK
     Route: 048
     Dates: start: 2009, end: 2015
  10. ATRIPLA [Suspect]
     Active Substance: EFAVIRENZ\EMTRICITABINE\TENOFOVIR DISOPROXIL FUMARATE
     Dosage: UNK
     Route: 048
     Dates: start: 20100122, end: 201101
  11. ATRIPLA [Suspect]
     Active Substance: EFAVIRENZ\EMTRICITABINE\TENOFOVIR DISOPROXIL FUMARATE
     Dosage: UNK
     Route: 048
     Dates: start: 200902, end: 200904
  12. EPZICOM [Concomitant]
     Active Substance: ABACAVIR SULFATE\LAMIVUDINE
  13. JULUCA [Concomitant]
     Active Substance: DOLUTEGRAVIR SODIUM\RILPIVIRINE HYDROCHLORIDE
  14. TIVICAY [Concomitant]
     Active Substance: DOLUTEGRAVIR SODIUM
  15. TRIUMEQ [Concomitant]
     Active Substance: ABACAVIR SULFATE\DOLUTEGRAVIR SODIUM\LAMIVUDINE
  16. ACETAMINOPHEN [Concomitant]
     Active Substance: ACETAMINOPHEN
  17. IBUPROFEN [Concomitant]
     Active Substance: IBUPROFEN
  18. PANTOPRAZOLE [Concomitant]
     Active Substance: PANTOPRAZOLE
  19. ZOLOFT [Concomitant]
     Active Substance: SERTRALINE HYDROCHLORIDE
  20. ARMOUR THYROID [Concomitant]
     Active Substance: THYROID, PORCINE
  21. ASPIRIN [Concomitant]
     Active Substance: ASPIRIN
  22. FLOMAX [Concomitant]
     Active Substance: TAMSULOSIN HYDROCHLORIDE
  23. OMEPRAZOLE [Concomitant]
     Active Substance: OMEPRAZOLE
  24. PREDNISOLONE [Concomitant]
     Active Substance: PREDNISOLONE
  25. PREDNISONE [Concomitant]
     Active Substance: PREDNISONE
  26. RABEPRAZOLE [Concomitant]
     Active Substance: RABEPRAZOLE
  27. TETRACYCLINE [Concomitant]
     Active Substance: TETRACYCLINE
  28. TRIAMCINOLONE [Concomitant]
     Active Substance: TRIAMCINOLONE
  29. ALPRAZOLAM [Concomitant]
     Active Substance: ALPRAZOLAM
  30. PROMETRIUM [Concomitant]
     Active Substance: PROGESTERONE
  31. ESTRACE [Concomitant]
     Active Substance: ESTRADIOL
  32. HYDROCODONE BITARTRATE AND ACETAMINOPHEN [Concomitant]
     Active Substance: ACETAMINOPHEN\HYDROCODONE BITARTRATE
  33. METOCLOPRAMIDE [Concomitant]
     Active Substance: METOCLOPRAMIDE
  34. ACIPHEX [Concomitant]
     Active Substance: RABEPRAZOLE SODIUM
  35. FAMOTIDINE [Concomitant]
     Active Substance: FAMOTIDINE
  36. LORAZEPAM [Concomitant]
     Active Substance: LORAZEPAM
  37. NAPROXEN SODIUM [Concomitant]
     Active Substance: NAPROXEN SODIUM
  38. CLOBETASOL [Concomitant]
     Active Substance: CLOBETASOL
  39. CLONAZEPAM [Concomitant]
     Active Substance: CLONAZEPAM
  40. DICLOFENAC [Concomitant]
     Active Substance: DICLOFENAC
  41. DIAZEPAM [Concomitant]
     Active Substance: DIAZEPAM
  42. DICLOFENAC SODIUM [Concomitant]
     Active Substance: DICLOFENAC SODIUM
  43. DICLOFENAC SODIUM [Concomitant]
     Active Substance: DICLOFENAC SODIUM
  44. DOXYCYCLINE HYCLATE [Concomitant]
     Active Substance: DOXYCYCLINE HYCLATE
  45. NASONEX [Concomitant]
     Active Substance: MOMETASONE FUROATE
  46. DESONIDE [Concomitant]
     Active Substance: DESONIDE
  47. TEMAZEPAM [Concomitant]
     Active Substance: TEMAZEPAM
  48. PAROXETINE [Concomitant]
     Active Substance: PAROXETINE
  49. FLUTICASONE PROPIONATE [Concomitant]
     Active Substance: FLUTICASONE PROPIONATE
  50. BESIVANCE [Concomitant]
     Active Substance: BESIFLOXACIN
  51. DULOXETINE [Concomitant]
     Active Substance: DULOXETINE
  52. EGRIFTA [Concomitant]
     Active Substance: TESAMORELIN ACETATE
  53. FLUOCINOLONE [Concomitant]
     Active Substance: FLUOCINOLONE
  54. THYROID, PORCINE [Concomitant]
     Active Substance: THYROID, PORCINE

REACTIONS (13)
  - Chronic kidney disease [Not Recovered/Not Resolved]
  - Fanconi syndrome acquired [Recovered/Resolved]
  - Fanconi syndrome acquired [Recovered/Resolved]
  - Tooth loss [Not Recovered/Not Resolved]
  - Quality of life decreased [Unknown]
  - Fatigue [Unknown]
  - Temperature intolerance [Unknown]
  - Emotional distress [Unknown]
  - Pain [Unknown]
  - Tooth fracture [Unknown]
  - Bone density decreased [Unknown]
  - Asthenia [Unknown]
  - Rash [Unknown]

NARRATIVE: CASE EVENT DATE: 20140516
